FAERS Safety Report 17900517 (Version 1)
Quarter: 2020Q2

REPORT INFORMATION
  Report Type: Spontaneous
  Country: US (occurrence: US)
  Receive Date: 20200615
  Receipt Date: 20200615
  Transmission Date: 20200714
  Serious: Yes (Death)
  Sender: FDA-Public Use
  Company Number: None

PATIENT
  Age: 50 Year
  Sex: Female

DRUGS (11)
  1. TAMOIXIFEN [Concomitant]
  2. ALBUTEROL NES [Concomitant]
  3. PROAIR HFA [Concomitant]
     Active Substance: ALBUTEROL SULFATE
  4. BENZONATATE. [Concomitant]
     Active Substance: BENZONATATE
  5. ONDANSETRON [Concomitant]
     Active Substance: ONDANSETRON
  6. IBRANCE [Suspect]
     Active Substance: PALBOCICLIB
     Indication: BREAST CANCER FEMALE
     Dosage: ?          OTHER ROUTE:PO - SA ON 7 D OFF?
     Dates: start: 20200430, end: 20200530
  7. DEXAMETHASON [Concomitant]
     Active Substance: DEXAMETHASONE
  8. OSELTAMIVIR [Concomitant]
     Active Substance: OSELTAMIVIR
  9. ALBUTEROL AER [Concomitant]
  10. CEPHALEXIN. [Concomitant]
     Active Substance: CEPHALEXIN
  11. NAPROXEN. [Concomitant]
     Active Substance: NAPROXEN

REACTIONS (1)
  - Death [None]

NARRATIVE: CASE EVENT DATE: 20200530
